FAERS Safety Report 9413936 (Version 2)
Quarter: 2013Q3

REPORT INFORMATION
  Report Type: Report from Study
  Country: DE (occurrence: DE)
  Receive Date: 20130723
  Receipt Date: 20130801
  Transmission Date: 20140515
  Serious: Yes (Hospitalization, Other)
  Sender: FDA-Public Use
  Company Number: DE-ROCHE-1251922

PATIENT
  Sex: Female

DRUGS (7)
  1. RANIBIZUMAB [Suspect]
     Indication: VISUAL IMPAIRMENT
     Route: 050
     Dates: start: 20120321
  2. RANIBIZUMAB [Suspect]
     Route: 050
     Dates: start: 20120424
  3. RANIBIZUMAB [Suspect]
     Route: 050
     Dates: start: 20120522
  4. RANIBIZUMAB [Suspect]
     Route: 050
     Dates: start: 20120925
  5. RANIBIZUMAB [Suspect]
     Route: 050
     Dates: start: 20121023
  6. RANIBIZUMAB [Suspect]
     Route: 050
     Dates: start: 20121220
  7. RANIBIZUMAB [Suspect]
     Route: 050
     Dates: start: 20130122

REACTIONS (2)
  - Coronary artery disease [Recovered/Resolved]
  - Retinal oedema [Unknown]
